FAERS Safety Report 5072148-2 (Version None)
Quarter: 2006Q3

REPORT INFORMATION
  Report Type: 
  Country: None (occurrence: None)
  Receive Date: 20060717
  Receipt Date: 20060309
  Transmission Date: 20061208
  Serious: No
  Sender: FDA-Public Use
  Company Number: 2006000583

PATIENT
  Age: 71 Year
  Sex: Female

DRUGS (11)
  1. TARCEVA [Suspect]
     Dosage: 150 MG (QD), ORAL
     Route: 048
     Dates: start: 20051223, end: 20060201
  2. DIFLUCAN [Concomitant]
  3. SYNTHROID [Concomitant]
  4. LIPITOR [Concomitant]
  5. ZESTRIL [Concomitant]
  6. ATIVAN [Concomitant]
  7. METFORMIN (METFORMIN) [Concomitant]
  8. NORVASC [Concomitant]
  9. PAXIL [Concomitant]
  10. FLUTICASONE PROPIONATE [Concomitant]
  11. TIOTROPIUM [Concomitant]

REACTIONS (2)
  - ERYTHEMA OF EYELID [None]
  - RASH [None]
